FAERS Safety Report 21726605 (Version 3)
Quarter: 2022Q4

REPORT INFORMATION
  Report Type: Spontaneous
  Country: BR (occurrence: None)
  Receive Date: 20221214
  Receipt Date: 20221222
  Transmission Date: 20230113
  Serious: Yes (Other)
  Sender: FDA-Public Use
  Company Number: 2022A404534

PATIENT
  Sex: Female

DRUGS (2)
  1. LYNPARZA [Suspect]
     Active Substance: OLAPARIB
     Indication: Gene mutation
     Dosage: TWO TABLETS IN THE MORNING AND TWO TABLETS AT NIGHT
     Route: 048
     Dates: start: 201911
  2. SAXENDA [Concomitant]
     Active Substance: LIRAGLUTIDE
     Indication: Weight increased
     Route: 065
     Dates: start: 2022

REACTIONS (4)
  - Malignant neoplasm progression [Not Recovered/Not Resolved]
  - Acquired factor XI deficiency [Not Recovered/Not Resolved]
  - Blood creatine phosphokinase increased [Not Recovered/Not Resolved]
  - Haemoglobin decreased [Not Recovered/Not Resolved]
